FAERS Safety Report 9423336 (Version 2)
Quarter: 2013Q3

REPORT INFORMATION
  Report Type: Report from Study
  Country: AT (occurrence: AT)
  Receive Date: 20130726
  Receipt Date: 20130815
  Transmission Date: 20140515
  Serious: Yes (Hospitalization)
  Sender: FDA-Public Use
  Company Number: AT-MILLENNIUM PHARMACEUTICALS, INC.-2013-05530

PATIENT
  Sex: 0

DRUGS (6)
  1. VELCADE [Suspect]
     Indication: PLASMA CELL MYELOMA
     Dosage: 2.34 MG, UNK
     Route: 042
     Dates: start: 20130111, end: 20130621
  2. CYCLOPHOSPHAMIDE [Suspect]
     Indication: PLASMA CELL MYELOMA
     Dosage: 4 MG, QD
     Route: 042
     Dates: start: 20130111, end: 20130115
  3. DEXAMETHASONE [Suspect]
     Indication: PLASMA CELL MYELOMA
     Dosage: 40 MG, UNK
     Route: 048
     Dates: start: 20130111, end: 20130304
  4. G-CSF [Suspect]
     Indication: PLASMA CELL MYELOMA
     Dosage: UNK
     Route: 058
     Dates: start: 20130418, end: 20130426
  5. MELPHALAN [Suspect]
     Indication: PLASMA CELL MYELOMA
     Dosage: 180 MG, UNK
     Route: 042
     Dates: start: 20130621, end: 20130622
  6. HYDAL [Concomitant]
     Indication: PAIN
     Dosage: 24 MG, UNK
     Route: 048
     Dates: start: 20130710

REACTIONS (1)
  - Pain [Recovering/Resolving]
